FAERS Safety Report 7525049-1 (Version None)
Quarter: 2011Q2

REPORT INFORMATION
  Report Type: 
  Country: None (occurrence: None)
  Receive Date: 20110606
  Receipt Date: 20110523
  Transmission Date: 20111010
  Serious: Yes (Hospitalization, Other)
  Sender: FDA-Public Use
  Company Number: US-ELI_LILLY_AND_COMPANY-US200909000630

PATIENT
  Sex: Male

DRUGS (8)
  1. COREG [Concomitant]
     Dosage: 3.125 MG, QD
  2. LEVEMIR [Concomitant]
     Dosage: 25 U, QD
  3. NOVOLOG [Concomitant]
  4. ASPIRIN [Concomitant]
  5. CRESTOR [Concomitant]
     Dosage: 20 MG, QD
  6. FORTEO [Suspect]
     Indication: OSTEOPOROSIS
     Dosage: 20 UG, QD
     Route: 065
     Dates: start: 20100101
  7. FORTEO [Suspect]
     Dosage: 20 UG, QD
     Route: 065
  8. TAMSULOSIN HCL [Concomitant]
     Dosage: 4 MG, BID

REACTIONS (3)
  - HEART RATE DECREASED [None]
  - LOSS OF CONSCIOUSNESS [None]
  - MUSCLE SPASMS [None]
